FAERS Safety Report 6885648-7 (Version None)
Quarter: 2010Q3

REPORT INFORMATION
  Report Type: 
  Country: None (occurrence: None)
  Receive Date: 20100729
  Receipt Date: 20080804
  Transmission Date: 20110219
  Serious: Yes (Other)
  Sender: FDA-Public Use
  Company Number: US-PFIZER INC-2008051802

PATIENT
  Age: 55 Year
  Sex: Female
  Weight: 128.8 kg

DRUGS (2)
  1. CELEBREX [Suspect]
     Indication: OEDEMA
     Dates: start: 20080604, end: 20080601
  2. ANTIHYPERTENSIVES [Concomitant]

REACTIONS (2)
  - OEDEMA PERIPHERAL [None]
  - WEIGHT INCREASED [None]
